FAERS Safety Report 5253357-6 (Version None)
Quarter: 2007Q1

REPORT INFORMATION
  Report Type: 
  Country: None (occurrence: None)
  Receive Date: 20070301
  Receipt Date: 20070221
  Transmission Date: 20070707
  Serious: Yes (Other)
  Sender: FDA-Public Use
  Company Number: JP-BRISTOL-MYERS SQUIBB COMPANY-13671110

PATIENT
  Age: 57 Year
  Sex: Female

DRUGS (6)
  1. TAXOL [Suspect]
     Indication: UTERINE CANCER
     Route: 041
     Dates: start: 20060629, end: 20061107
  2. PARAPLATIN [Suspect]
     Indication: UTERINE CANCER
     Route: 041
     Dates: start: 20060629, end: 20061107
  3. AMARYL [Concomitant]
     Route: 048
     Dates: start: 20060101
  4. DEXAMETHASONE [Concomitant]
     Dates: start: 20060629, end: 20061107
  5. DIPHENHYDRAMINE HCL [Concomitant]
     Route: 048
     Dates: start: 20060629, end: 20061107
  6. RANITIDINE HCL [Concomitant]
     Route: 042
     Dates: start: 20060629, end: 20061107

REACTIONS (5)
  - HAEMOGLOBIN DECREASED [None]
  - NEUROPATHY PERIPHERAL [None]
  - NEUTROPHIL COUNT DECREASED [None]
  - RETINOPATHY [None]
  - THROMBOCYTOPENIA [None]
